FAERS Safety Report 7771425-1 (Version None)
Quarter: 2011Q3

REPORT INFORMATION
  Report Type: 
  Country: None (occurrence: None)
  Receive Date: 20110922
  Receipt Date: 20100922
  Transmission Date: 20111222
  Serious: No
  Sender: FDA-Public Use
  Company Number: US-ASTRAZENECA-2010SE32663

PATIENT
  Age: 49 Year
  Sex: Female
  Weight: 56.7 kg

DRUGS (8)
  1. SEROQUEL [Suspect]
     Indication: PSYCHOMOTOR HYPERACTIVITY
     Route: 048
     Dates: start: 20020101, end: 20100201
  2. CLONOPIN [Concomitant]
     Indication: PANIC ATTACK
  3. SEROQUEL [Suspect]
     Indication: INSOMNIA
     Route: 048
     Dates: start: 20020101, end: 20100201
  4. SEROQUEL [Suspect]
     Route: 048
     Dates: start: 20100201, end: 20100801
  5. SOMA [Concomitant]
     Indication: BACK PAIN
  6. SEROQUEL [Suspect]
     Route: 048
     Dates: start: 20100201, end: 20100801
  7. SEROQUEL [Suspect]
     Route: 048
     Dates: start: 20100801
  8. SEROQUEL [Suspect]
     Route: 048
     Dates: start: 20100801

REACTIONS (14)
  - WEIGHT DECREASED [None]
  - CARDIAC DISCOMFORT [None]
  - SLEEP DISORDER [None]
  - THERAPEUTIC RESPONSE UNEXPECTED [None]
  - DIZZINESS POSTURAL [None]
  - ILL-DEFINED DISORDER [None]
  - DISCOMFORT [None]
  - INSOMNIA [None]
  - DRUG ABUSE [None]
  - DRUG DOSE OMISSION [None]
  - MALAISE [None]
  - BACK PAIN [None]
  - POOR QUALITY SLEEP [None]
  - DECREASED APPETITE [None]
